FAERS Safety Report 17933067 (Version 2)
Quarter: 2020Q2

REPORT INFORMATION
  Report Type: Report from Study
  Country: NL (occurrence: NL)
  Receive Date: 20200624
  Receipt Date: 20200629
  Transmission Date: 20200714
  Serious: Yes (Hospitalization)
  Sender: FDA-Public Use
  Company Number: NL-ROCHE-2628240

PATIENT
  Age: 48 Year
  Sex: Female

DRUGS (4)
  1. ATEZOLIZUMAB. [Suspect]
     Active Substance: ATEZOLIZUMAB
     Indication: TRIPLE NEGATIVE BREAST CANCER
     Dosage: CYCLUS 21?MOST RECENT DATE OF ADMINISTRATION: 10/JUN/2020
     Route: 042
     Dates: start: 20190130
  2. PACLITAXEL. [Suspect]
     Active Substance: PACLITAXEL
     Indication: TRIPLE NEGATIVE BREAST CANCER
     Dosage: CYCLUS 21?MOST RECENT DOSE ADMINISTERED :03/JUL/2019
     Route: 042
     Dates: start: 20190130
  3. KEPPRA [Concomitant]
     Active Substance: LEVETIRACETAM
  4. DEXAMETHASONE. [Concomitant]
     Active Substance: DEXAMETHASONE

REACTIONS (1)
  - Epilepsy [Recovered/Resolved with Sequelae]

NARRATIVE: CASE EVENT DATE: 20200617
